FAERS Safety Report 7113347-5 (Version None)
Quarter: 2010Q4

REPORT INFORMATION
  Report Type: 
  Country: None (occurrence: None)
  Receive Date: 20101119
  Receipt Date: 20101110
  Transmission Date: 20110411
  Serious: Yes (Other)
  Sender: FDA-Public Use
  Company Number: US-JNJFOC-20100900532

PATIENT
  Sex: Female

DRUGS (4)
  1. MONISTAT 3 CREAM COMBINATION PACK [Suspect]
     Route: 067
  2. MONISTAT 3 CREAM COMBINATION PACK [Suspect]
     Indication: ILL-DEFINED DISORDER
     Route: 067
  3. MONISTAT 3 CREAM COMBINATION PACK [Suspect]
     Route: 061
  4. MONISTAT 3 CREAM COMBINATION PACK [Suspect]
     Route: 061

REACTIONS (3)
  - BLOOD URINE PRESENT [None]
  - PRODUCT QUALITY ISSUE [None]
  - URINARY TRACT INFECTION [None]
